FAERS Safety Report 5129249-X (Version None)
Quarter: 2006Q4

REPORT INFORMATION
  Report Type: 
  Country: None (occurrence: None)
  Receive Date: 20061011
  Receipt Date: 20060929
  Transmission Date: 20070319
  Serious: Yes (Other)
  Sender: FDA-Public Use
  Company Number: 02100-JPN-06-0477

PATIENT
  Age: 82 Year
  Sex: Female

DRUGS (8)
  1. CILOSTAZOL [Suspect]
     Indication: ARTERIOSCLEROSIS OBLITERANS
     Dosage: 200 MG, ORAL
     Route: 048
     Dates: start: 20060811, end: 20060922
  2. CELIPROLOL HYDROCHLORIDE [Suspect]
     Indication: CEREBRAL INFARCTION
     Dosage: ORAL
     Route: 048
     Dates: start: 20060801
  3. OXAZOLAM [Concomitant]
  4. UNSPECIFIED DRUG [Concomitant]
  5. UNSPECIFIED DRUG [Concomitant]
  6. ASPIRIN [Concomitant]
  7. CEFPODOXIME PROXETIL [Concomitant]
  8. ANTIBIOTICS RESISTANT LACTIC ACID BACTERIAE [Concomitant]

REACTIONS (1)
  - TONSILLITIS [None]
